FAERS Safety Report 4949420-7 (Version None)
Quarter: 2006Q1

REPORT INFORMATION
  Report Type: 
  Country: None (occurrence: None)
  Receive Date: 20060315
  Receipt Date: 20060302
  Transmission Date: 20060701
  Serious: Yes (Other)
  Sender: FDA-Public Use
  Company Number: 2006032729

PATIENT
  Age: 80 Year
  Sex: Male
  Weight: 108.8633 kg

DRUGS (3)
  1. CELEBREX [Suspect]
     Indication: ARTHRITIS
     Dosage: 200 MG (200 MG, 1 IN 1 D), UNKNOWN
     Route: 065
  2. HYTRIN [Concomitant]
  3. PROPRANOLOL [Concomitant]

REACTIONS (1)
  - LUNG NEOPLASM MALIGNANT [None]
